FAERS Safety Report 21814939 (Version 1)
Quarter: 2023Q1

REPORT INFORMATION
  Report Type: Spontaneous
  Country: FR (occurrence: None)
  Receive Date: 20230104
  Receipt Date: 20230104
  Transmission Date: 20230418
  Serious: Yes (Hospitalization)
  Sender: FDA-Public Use
  Company Number: None

PATIENT
  Sex: Male
  Weight: 54 kg

DRUGS (1)
  1. ZELBORAF [Suspect]
     Active Substance: VEMURAFENIB
     Indication: Ganglioglioma
     Route: 065
     Dates: start: 20200112

REACTIONS (7)
  - Depression [Not Recovered/Not Resolved]
  - Suicidal ideation [Not Recovered/Not Resolved]
  - Anxiety [Not Recovered/Not Resolved]
  - Weight decreased [Recovered/Resolved]
  - Abdominal pain [Recovered/Resolved]
  - Photosensitivity reaction [Recovering/Resolving]
  - Keratosis pilaris [Not Recovered/Not Resolved]

NARRATIVE: CASE EVENT DATE: 20201201
